FAERS Safety Report 5602407-3 (Version None)
Quarter: 2008Q1

REPORT INFORMATION
  Report Type: 
  Country: None (occurrence: None)
  Receive Date: 20080125
  Receipt Date: 20080115
  Transmission Date: 20080703
  Serious: Yes (Other)
  Sender: FDA-Public Use
  Company Number: CA-JNJFOC-20070902594

PATIENT
  Sex: Male

DRUGS (7)
  1. TRAMACET [Suspect]
     Indication: BACK PAIN
     Route: 065
  2. TRAMACET [Suspect]
     Indication: PAIN
     Route: 065
  3. TRAMACET [Suspect]
     Indication: MYALGIA
     Route: 065
  4. TRAMACET [Suspect]
     Indication: RADICULAR PAIN
     Dosage: MORNING
     Route: 065
  5. VOLTAREN [Concomitant]
  6. CYCLOPRINE [Concomitant]
  7. PROCTOSONE [Concomitant]
     Indication: HAEMORRHOIDS

REACTIONS (5)
  - CONSTIPATION [None]
  - FATIGUE [None]
  - HYPERMETROPIA [None]
  - INITIAL INSOMNIA [None]
  - SOMNOLENCE [None]
